FAERS Safety Report 10369510 (Version 2)
Quarter: 2015Q1

REPORT INFORMATION
  Report Type: Report from Study
  Country: US (occurrence: US)
  Receive Date: 20140807
  Receipt Date: 20150331
  Transmission Date: 20150720
  Serious: Yes (Death, Other)
  Sender: FDA-Public Use
  Company Number: US-GILEAD-2014-0111414

PATIENT
  Age: 73 Year
  Sex: Female

DRUGS (9)
  1. AMBRISENTAN [Suspect]
     Active Substance: AMBRISENTAN
     Indication: INTERSTITIAL LUNG DISEASE
  2. WARFARIN [Concomitant]
     Active Substance: WARFARIN
  3. DILTIAZEM [Concomitant]
     Active Substance: DILTIAZEM
  4. FUROSEMIDE. [Concomitant]
     Active Substance: FUROSEMIDE
  5. AMBRISENTAN [Suspect]
     Active Substance: AMBRISENTAN
     Indication: PULMONARY HYPERTENSION
     Dosage: 5 MG, QD
     Route: 065
     Dates: start: 20140617, end: 20140729
  6. AMIODARONE [Concomitant]
     Active Substance: AMIODARONE
  7. ESZOPICLONE. [Concomitant]
     Active Substance: ESZOPICLONE
  8. LOVASTATIN. [Concomitant]
     Active Substance: LOVASTATIN
  9. BROVANA [Concomitant]
     Active Substance: ARFORMOTEROL TARTRATE

REACTIONS (3)
  - Sepsis [Fatal]
  - Pneumonia [Fatal]
  - Acute respiratory failure [Fatal]
